FAERS Safety Report 14179660 (Version 1)
Quarter: 2017Q4

REPORT INFORMATION
  Report Type: Report from Study
  Country: US (occurrence: US)
  Receive Date: 20171110
  Receipt Date: 20171110
  Transmission Date: 20180321
  Serious: Yes (Other)
  Sender: FDA-Public Use
  Company Number: US-GILEAD-2017-0296506

PATIENT
  Age: 51 Year
  Sex: Male

DRUGS (2)
  1. LEDIPASVIR/SOFOSBUVIR [Suspect]
     Active Substance: LEDIPASVIR\SOFOSBUVIR
     Indication: HEPATITIS C
     Dosage: 1 DF, UNK
     Route: 048
     Dates: start: 20170831
  2. LEDIPASVIR/SOFOSBUVIR [Suspect]
     Active Substance: LEDIPASVIR\SOFOSBUVIR
     Dosage: 1 UNK, UNK
     Route: 048
     Dates: start: 20170920

REACTIONS (9)
  - Arthropod sting [Unknown]
  - Nervousness [Unknown]
  - Intentional dose omission [Recovered/Resolved]
  - Nasal congestion [Not Recovered/Not Resolved]
  - Paranasal sinus hypersecretion [Unknown]
  - Crohn^s disease [Not Recovered/Not Resolved]
  - Headache [Not Recovered/Not Resolved]
  - Increased upper airway secretion [Unknown]
  - Fatigue [Unknown]

NARRATIVE: CASE EVENT DATE: 20171017
